FAERS Safety Report 17159583 (Version 1)
Quarter: 2019Q4

REPORT INFORMATION
  Report Type: Spontaneous
  Country: DE (occurrence: DE)
  Receive Date: 20191216
  Receipt Date: 20191216
  Transmission Date: 20200122
  Serious: Yes (Other)
  Sender: FDA-Public Use
  Company Number: DE-MYLANLABS-2019M1122741

PATIENT
  Age: 54 Year
  Sex: Female

DRUGS (2)
  1. PREGABALIN. [Suspect]
     Active Substance: PREGABALIN
     Indication: DEPRESSION
  2. PREGABALIN. [Suspect]
     Active Substance: PREGABALIN
     Indication: ANXIETY
     Dosage: UNK

REACTIONS (7)
  - Pain [Unknown]
  - Chills [Unknown]
  - Vomiting [Unknown]
  - Anal haemorrhage [Unknown]
  - Haematemesis [Unknown]
  - Hyperhidrosis [Unknown]
  - Diarrhoea [Unknown]
